FAERS Safety Report 16507235 (Version 1)
Quarter: 2019Q3

REPORT INFORMATION
  Report Type: Spontaneous
  Country: US (occurrence: US)
  Receive Date: 20190701
  Receipt Date: 20190701
  Transmission Date: 20191004
  Serious: No
  Sender: FDA-Public Use
  Company Number: US-PFIZER INC-2019279383

PATIENT
  Age: 71 Year

DRUGS (2)
  1. AMIODARONE HCL [Suspect]
     Active Substance: AMIODARONE HYDROCHLORIDE
     Dosage: UNK
  2. SIMVASTATIN. [Interacting]
     Active Substance: SIMVASTATIN
     Dosage: 20 MG, DAILY

REACTIONS (1)
  - Drug interaction [Unknown]
